FAERS Safety Report 9116021 (Version 1)
Quarter: 2013Q1

REPORT INFORMATION
  Report Type: Spontaneous
  Country: US (occurrence: US)
  Receive Date: 20130225
  Receipt Date: 20130225
  Transmission Date: 20140127
  Serious: No
  Sender: FDA-Public Use
  Company Number: US-009507513-1302USA010593

PATIENT
  Sex: Female

DRUGS (6)
  1. COZAAR [Suspect]
     Dosage: 100 MG, QD
     Route: 048
  2. COZAAR [Suspect]
     Dosage: 100 MG, BID
     Route: 048
  3. METOPROLOL [Concomitant]
  4. AMLODIPINE [Concomitant]
  5. DIGOXIN [Concomitant]
  6. METFORMIN [Concomitant]

REACTIONS (2)
  - Blood pressure abnormal [Unknown]
  - Overdose [Unknown]
